FAERS Safety Report 20381835 (Version 1)
Quarter: 2022Q1

REPORT INFORMATION
  Report Type: Spontaneous
  Country: DE (occurrence: DE)
  Receive Date: 20220127
  Receipt Date: 20220127
  Transmission Date: 20220423
  Serious: Yes (Other)
  Sender: FDA-Public Use
  Company Number: None

PATIENT
  Sex: Female
  Weight: 64 kg

DRUGS (4)
  1. PRADAXA [Suspect]
     Active Substance: DABIGATRAN ETEXILATE MESYLATE
     Indication: Cardiac pacemaker insertion
     Route: 048
     Dates: start: 201111, end: 2012
  2. PRADAXA [Suspect]
     Active Substance: DABIGATRAN ETEXILATE MESYLATE
     Indication: Cardiac failure
  3. PRADAXA [Suspect]
     Active Substance: DABIGATRAN ETEXILATE MESYLATE
     Indication: Post procedural haematoma
  4. PRADAXA [Suspect]
     Active Substance: DABIGATRAN ETEXILATE MESYLATE
     Indication: Atrial fibrillation

REACTIONS (15)
  - Atrial fibrillation [Recovered/Resolved]
  - Joint swelling [Recovered/Resolved]
  - Palpitations [Recovered/Resolved]
  - Pain in extremity [Recovered/Resolved]
  - Arthralgia [Recovered/Resolved]
  - Oedema peripheral [Recovered/Resolved]
  - Fatigue [Recovered/Resolved]
  - Oedema peripheral [Recovered/Resolved]
  - Musculoskeletal chest pain [Recovered/Resolved]
  - Palpitations [Recovered/Resolved]
  - Pain [Recovered/Resolved]
  - Apathy [Recovered/Resolved]
  - Somnolence [Recovered/Resolved]
  - Angiopathy [Recovered/Resolved with Sequelae]
  - Haemorrhoidal haemorrhage [Recovered/Resolved]

NARRATIVE: CASE EVENT DATE: 20120201
